FAERS Safety Report 6172061-3 (Version None)
Quarter: 2009Q2

REPORT INFORMATION
  Report Type: 
  Country: None (occurrence: None)
  Receive Date: 20090428
  Receipt Date: 20090428
  Transmission Date: 20091009
  Serious: Yes (Hospitalization)
  Sender: FDA-Public Use
  Company Number: None

PATIENT
  Age: 79 Year
  Sex: Female
  Weight: 68 kg

DRUGS (4)
  1. PACLITAXEL [Suspect]
     Indication: ENDOMETRIAL CANCER
     Dosage: 280 MG ONE TIME IV DRIP
     Route: 041
     Dates: start: 20090409, end: 20090409
  2. DIPHENHYDRAMINE HCL [Concomitant]
  3. DEXAMETHASONE 4MG TAB [Concomitant]
  4. SODIUM CHLORIDE [Concomitant]

REACTIONS (3)
  - DYSPNOEA [None]
  - HYPOTENSION [None]
  - TACHYCARDIA [None]
